FAERS Safety Report 7395439-9 (Version None)
Quarter: 2011Q2

REPORT INFORMATION
  Report Type: 
  Country: None (occurrence: None)
  Receive Date: 20110405
  Receipt Date: 20110330
  Transmission Date: 20111010
  Serious: Yes (Death)
  Sender: FDA-Public Use
  Company Number: JP-CEPHALON-2011001603

PATIENT
  Sex: Male

DRUGS (2)
  1. RITUXIMAB [Concomitant]
     Dates: start: 20110301
  2. BENDAMUSTINE HCL [Suspect]
     Indication: MANTLE CELL LYMPHOMA
     Route: 042
     Dates: start: 20110302, end: 20110303

REACTIONS (1)
  - MANTLE CELL LYMPHOMA [None]
